FAERS Safety Report 5664124-3 (Version None)
Quarter: 2008Q1

REPORT INFORMATION
  Report Type: 
  Country: None (occurrence: None)
  Receive Date: 20080312
  Receipt Date: 20080306
  Transmission Date: 20080703
  Serious: Yes (Disabling)
  Sender: FDA-Public Use
  Company Number: OSCN-PR-0803S-0105

PATIENT
  Sex: Female

DRUGS (5)
  1. OMNISCAN [Suspect]
     Indication: DRUG USE FOR UNKNOWN INDICATION
     Dosage: SINGLE DOSE, I.V.
     Route: 042
     Dates: start: 20000905, end: 20000905
  2. OMNISCAN [Suspect]
     Indication: DRUG USE FOR UNKNOWN INDICATION
     Dosage: SINGLE DOSE, I.V.
     Route: 042
     Dates: start: 20001102, end: 20001102
  3. OMNISCAN [Suspect]
     Indication: DRUG USE FOR UNKNOWN INDICATION
     Dosage: SINGLE DOSE, I.V.
     Route: 042
     Dates: start: 20040614, end: 20040614
  4. OMNISCAN [Suspect]
     Indication: DRUG USE FOR UNKNOWN INDICATION
     Dosage: SINGLE DOSE, I.V.
     Route: 042
     Dates: start: 20040617, end: 20040617
  5. OMNISCAN [Suspect]
     Indication: DRUG USE FOR UNKNOWN INDICATION
     Dosage: SINGLE DOSE, I.V.
     Route: 042
     Dates: start: 20040727, end: 20040727

REACTIONS (2)
  - NEPHROGENIC SYSTEMIC FIBROSIS [None]
  - OEDEMA PERIPHERAL [None]
